FAERS Safety Report 7945514-2 (Version None)
Quarter: 2011Q4

REPORT INFORMATION
  Report Type: 
  Country: None (occurrence: None)
  Receive Date: 20111129
  Receipt Date: 20111126
  Transmission Date: 20120403
  Serious: No
  Sender: FDA-Public Use
  Company Number: US-B.I. PHARMACEUTICALS,INC./RIDGEFIELD-2011-BP-26860BP

PATIENT
  Sex: Female

DRUGS (2)
  1. SPIRIVA [Suspect]
     Indication: EMPHYSEMA
     Dosage: 18 MCG
     Route: 055
     Dates: start: 20111101
  2. SYMBICORT [Concomitant]
     Indication: EMPHYSEMA
     Route: 055

REACTIONS (3)
  - DYSPHONIA [None]
  - PRODUCTIVE COUGH [None]
  - INCREASED UPPER AIRWAY SECRETION [None]
